FAERS Safety Report 6263429-5 (Version None)
Quarter: 2009Q3

REPORT INFORMATION
  Report Type: 
  Country: None (occurrence: None)
  Receive Date: 20090710
  Receipt Date: 20090121
  Transmission Date: 20100115
  Serious: Yes (Other)
  Sender: FDA-Public Use
  Company Number: A0764521A

PATIENT
  Age: 48 Year
  Sex: Female

DRUGS (5)
  1. FLOVENT [Suspect]
     Indication: ASTHMA
     Dosage: 2PUFF PER DAY
     Route: 055
     Dates: start: 20010101
  2. FLOVENT [Suspect]
     Dosage: 2PUFF PER DAY
     Route: 045
     Dates: start: 20010101
  3. ALBUTEROL [Concomitant]
  4. SINGULAIR [Concomitant]
  5. ALLEGRA [Concomitant]

REACTIONS (3)
  - ASTHMA [None]
  - INHALATION THERAPY [None]
  - MEDICATION ERROR [None]
